FAERS Safety Report 24093776 (Version 1)
Quarter: 2024Q3

REPORT INFORMATION
  Report Type: Spontaneous
  Country: CN (occurrence: CN)
  Receive Date: 20240715
  Receipt Date: 20240715
  Transmission Date: 20241016
  Serious: Yes (Hospitalization, Other)
  Sender: NOVITIUM PHARMA
  Company Number: CN-NOVITIUMPHARMA-2024CNNVP01283

PATIENT
  Age: 43 Year
  Sex: Female

DRUGS (17)
  1. PREDNISONE [Suspect]
     Active Substance: PREDNISONE
     Indication: T-cell lymphoma
  2. DEXAMETHASONE [Suspect]
     Active Substance: DEXAMETHASONE
     Indication: T-cell lymphoma
  3. PEGASPARGASE [Concomitant]
     Active Substance: PEGASPARGASE
     Indication: T-cell lymphoma
  4. EPIRUBICIN [Concomitant]
     Active Substance: EPIRUBICIN
     Indication: T-cell lymphoma
  5. CYCLOPHOSPHAMIDE [Concomitant]
     Active Substance: CYCLOPHOSPHAMIDE
     Indication: T-cell lymphoma
  6. VINDESINE [Concomitant]
     Active Substance: VINDESINE
     Indication: T-cell lymphoma
  7. METHOTREXATE [Concomitant]
     Active Substance: METHOTREXATE
     Indication: T-cell lymphoma
     Dosage: HIGH DOSE
  8. GEMCITABINE [Concomitant]
     Active Substance: GEMCITABINE
     Indication: T-cell lymphoma
  9. CISPLATIN [Concomitant]
     Active Substance: CISPLATIN
     Indication: T-cell lymphoma
  10. TUCIDINOSTAT [Concomitant]
     Active Substance: TUCIDINOSTAT
     Indication: T-cell lymphoma
     Route: 048
  11. DOXORUBICIN [Concomitant]
     Active Substance: DOXORUBICIN
     Indication: T-cell lymphoma
  12. ETOPOSIDE [Concomitant]
     Active Substance: ETOPOSIDE
     Indication: T-cell lymphoma
  13. CYTARABINE [Concomitant]
     Active Substance: CYTARABINE
     Indication: T-cell lymphoma
  14. CLADRIBINE [Concomitant]
     Active Substance: CLADRIBINE
     Indication: T-cell lymphoma
  15. THALIDOMIDE [Concomitant]
     Active Substance: THALIDOMIDE
     Indication: T-cell lymphoma
     Route: 048
  16. BORTEZOMIB [Concomitant]
     Active Substance: BORTEZOMIB
     Indication: T-cell lymphoma
  17. VENETOCLAX [Concomitant]
     Active Substance: VENETOCLAX
     Indication: T-cell lymphoma

REACTIONS (4)
  - Myelosuppression [Unknown]
  - Pneumonia [Unknown]
  - Haematological infection [Unknown]
  - Drug ineffective [Unknown]
